FAERS Safety Report 10464306 (Version 1)
Quarter: 2014Q3

REPORT INFORMATION
  Report Type: Spontaneous
  Country: CN (occurrence: CN)
  Receive Date: 20140919
  Receipt Date: 20140919
  Transmission Date: 20150326
  Serious: Yes (Hospitalization, Other)
  Sender: FDA-Public Use
  Company Number: CN-PAR PHARMACEUTICAL, INC-2014SCPR009389

PATIENT

DRUGS (1)
  1. KETALAR [Suspect]
     Active Substance: KETAMINE HYDROCHLORIDE
     Indication: DRUG DIVERSION
     Dosage: UNK, UNKNOWN
     Route: 065

REACTIONS (4)
  - Liver abscess [Recovered/Resolved]
  - Biliary tract disorder [Recovered/Resolved]
  - Drug abuse [Unknown]
  - Cholestasis [Recovered/Resolved]
